FAERS Safety Report 18878895 (Version 1)
Quarter: 2021Q1

REPORT INFORMATION
  Report Type: Spontaneous
  Country: DE (occurrence: DE)
  Receive Date: 20210211
  Receipt Date: 20210211
  Transmission Date: 20210420
  Serious: Yes (Hospitalization, Other)
  Sender: FDA-Public Use
  Company Number: DE-INSMED, INC.-DE-INS-21-00271

PATIENT
  Sex: Male

DRUGS (1)
  1. ARIKAYCE [Suspect]
     Active Substance: AMIKACIN
     Indication: MYCOBACTERIUM AVIUM COMPLEX INFECTION
     Route: 055
     Dates: start: 2020

REACTIONS (4)
  - Pneumonectomy [Unknown]
  - Bronchiectasis [Unknown]
  - Mechanical ventilation [Not Recovered/Not Resolved]
  - Wrong device used [Unknown]
